FAERS Safety Report 18252910 (Version 1)
Quarter: 2020Q3

REPORT INFORMATION
  Report Type: Spontaneous
  Country: US (occurrence: US)
  Receive Date: 20200910
  Receipt Date: 20200910
  Transmission Date: 20201103
  Serious: Yes (Other)
  Sender: FDA-Public Use
  Company Number: US-FRESENIUS KABI-FK202009247

PATIENT
  Age: 21 Year
  Sex: Female

DRUGS (2)
  1. FENTANYL (MANUFACTURER UNKNOWN) [Suspect]
     Active Substance: FENTANYL
     Indication: EPIDURAL ANALGESIA
     Dosage: ADMINISTERED IN 5ML INCREMENTS OVER 10 MINUTES THEN 6ML EVERY 45 MINUTES WITH PATIENT?CONTROLLED BOL
     Route: 008
  2. ROPIVACAINE (MANUFACTURER UNKNOWN) [Suspect]
     Active Substance: ROPIVACAINE
     Indication: EPIDURAL ANALGESIA
     Dosage: ADMINISTERED IN 5ML INCREMENTS OVER 10 MINUTES THEN 6ML EVERY 45 MINUTES WITH PATIENT?CONTROLLED BOL
     Route: 008

REACTIONS (4)
  - Exposure during pregnancy [Unknown]
  - Procedural headache [Unknown]
  - Generalised tonic-clonic seizure [Unknown]
  - Anaesthetic complication [Unknown]
